FAERS Safety Report 24731383 (Version 1)
Quarter: 2024Q4

REPORT INFORMATION
  Report Type: Spontaneous
  Country: CN (occurrence: CN)
  Receive Date: 20241213
  Receipt Date: 20241213
  Transmission Date: 20250114
  Serious: Yes (Hospitalization)
  Sender: PFIZER
  Company Number: CN-PFIZER INC-PV202400157889

PATIENT
  Age: 46 Year
  Sex: Female
  Weight: 53.6 kg

DRUGS (2)
  1. PACLITAXEL [Suspect]
     Active Substance: PACLITAXEL
     Indication: Ovarian cancer
     Dosage: 258.000 MG, 1X/DAY
     Route: 041
     Dates: start: 20210507, end: 20210507
  2. CARBOPLATIN [Suspect]
     Active Substance: CARBOPLATIN
     Indication: Ovarian cancer
     Dosage: 619 MG, 1X/DAY
     Route: 041
     Dates: start: 20210507, end: 20210507

REACTIONS (7)
  - Nausea [Recovering/Resolving]
  - Vomiting [Recovering/Resolving]
  - Alopecia [Recovering/Resolving]
  - Palpitations [Recovering/Resolving]
  - Pain in extremity [Recovering/Resolving]
  - Asthenia [Recovering/Resolving]
  - Mental disorder [Recovering/Resolving]

NARRATIVE: CASE EVENT DATE: 20210509
